FAERS Safety Report 4674097-8 (Version None)
Quarter: 2005Q2

REPORT INFORMATION
  Report Type: 
  Country: None (occurrence: None)
  Receive Date: 20050524
  Receipt Date: 20050524
  Transmission Date: 20051028
  Serious: Yes (Death)
  Sender: FDA-Public Use
  Company Number: None

PATIENT
  Age: 12 Year
  Sex: Male
  Weight: 40.8237 kg

DRUGS (1)
  1. ZOLOFT [Suspect]

REACTIONS (1)
  - MURDER [None]
